FAERS Safety Report 7762635-8 (Version None)
Quarter: 2011Q3

REPORT INFORMATION
  Report Type: 
  Country: None (occurrence: None)
  Receive Date: 20110920
  Receipt Date: 20110914
  Transmission Date: 20111222
  Serious: Yes (Hospitalization)
  Sender: FDA-Public Use
  Company Number: JP-GLAXOSMITHKLINE-B0747924A

PATIENT
  Age: 69 Year
  Sex: Female

DRUGS (4)
  1. CALBLOCK [Concomitant]
     Indication: HYPERTENSION
     Route: 048
  2. VALTREX [Suspect]
     Indication: HERPES ZOSTER
     Dosage: 3000MG PER DAY
     Dates: start: 20110831, end: 20110904
  3. LYRICA [Concomitant]
     Indication: NEURALGIA
     Route: 048
  4. VESICARE [Concomitant]
     Indication: POLLAKIURIA
     Route: 048

REACTIONS (3)
  - RENAL IMPAIRMENT [None]
  - CONVULSION [None]
  - LOSS OF CONSCIOUSNESS [None]
